FAERS Safety Report 9777653 (Version 5)
Quarter: 2014Q1

REPORT INFORMATION
  Report Type: Report from Study
  Country: DE (occurrence: DE)
  Receive Date: 20131223
  Receipt Date: 20140327
  Transmission Date: 20141002
  Serious: Yes (Death, Hospitalization, Other)
  Sender: FDA-Public Use
  Company Number: DE-ROCHE-1222388

PATIENT
  Age: 53 Year
  Sex: Male
  Weight: 80 kg

DRUGS (26)
  1. BEVACIZUMAB [Suspect]
     Indication: BRAIN NEOPLASM MALIGNANT
     Dosage: DATE OF LAST DOSE PRIOR TO EVENT 31/OCT/2013
     Route: 042
     Dates: start: 20130531
  2. IRINOTECAN [Suspect]
     Indication: BRAIN NEOPLASM MALIGNANT
     Dosage: DATE OF LAST DOSE PRIOR TO EVENT 31/OCT/2013
     Route: 042
     Dates: start: 20130531
  3. TEMOZOLOMIDE [Suspect]
     Indication: BRAIN NEOPLASM MALIGNANT
     Dosage: DATE OF LAST DOSE PRIOR TO EVENT: 21/JAN/2013
     Route: 048
     Dates: start: 20120621
  4. CEFTRIAXONE [Concomitant]
     Route: 065
     Dates: start: 20120518, end: 20120526
  5. DEXAMETHASON [Concomitant]
     Route: 065
     Dates: start: 20120530, end: 201208
  6. DEXAMETHASON [Concomitant]
     Route: 065
     Dates: start: 20120516, end: 20120517
  7. DEXAMETHASON [Concomitant]
     Route: 065
     Dates: start: 20120518, end: 20120522
  8. DEXAMETHASON [Concomitant]
     Route: 065
     Dates: start: 20120523, end: 20120525
  9. DEXAMETHASON [Concomitant]
     Route: 065
     Dates: start: 20120526, end: 20120529
  10. DEXAMETHASON [Concomitant]
     Route: 065
     Dates: start: 20130419, end: 20130426
  11. DEXAMETHASON [Concomitant]
     Route: 065
     Dates: start: 20130531
  12. DEXAMETHASON [Concomitant]
     Route: 065
     Dates: start: 20130429, end: 20130530
  13. DEXAMETHASON [Concomitant]
     Route: 065
     Dates: start: 20130928, end: 20131126
  14. PANTOZOL (GERMANY) [Concomitant]
     Route: 065
     Dates: start: 20120516
  15. FRAGMIN P [Concomitant]
     Dosage: 2500/IE
     Route: 065
     Dates: start: 20120516, end: 20120531
  16. TARGIN [Concomitant]
     Dosage: TOTAL DAILY DOSE:20/10 MG
     Route: 065
     Dates: start: 20120518, end: 20120522
  17. NOVALGIN (GERMANY) [Concomitant]
     Dosage: TOTAL DAILY DOSE:60 DROPS
     Route: 065
     Dates: start: 20120518, end: 20120520
  18. NOVALGIN (GERMANY) [Concomitant]
     Route: 065
     Dates: start: 20121017
  19. IBEROGAST [Concomitant]
     Route: 065
     Dates: start: 201208
  20. TILIDIN [Concomitant]
     Route: 065
     Dates: start: 201208, end: 201208
  21. BAYOTENSIN [Concomitant]
     Dosage: 1/PHIOLE
     Route: 065
     Dates: start: 20120524, end: 20120524
  22. BAYOTENSIN [Concomitant]
     Dosage: 1/PHIOLE
     Route: 065
     Dates: start: 20130823, end: 20130823
  23. TORASEMIDE [Concomitant]
     Route: 065
     Dates: start: 20120519, end: 20120531
  24. TORASEMIDE [Concomitant]
     Route: 065
     Dates: start: 20130419, end: 20130530
  25. TORASEMIDE [Concomitant]
     Route: 065
     Dates: start: 20130531, end: 20130927
  26. MUCOSOLVAN [Concomitant]
     Route: 065
     Dates: start: 20131017

REACTIONS (7)
  - Multi-organ failure [Fatal]
  - Muscle spasms [Fatal]
  - Hemiparesis [Not Recovered/Not Resolved]
  - Myoclonus [Recovered/Resolved with Sequelae]
  - Deep vein thrombosis [Recovering/Resolving]
  - Epistaxis [Recovered/Resolved]
  - Convulsion [Unknown]
